FAERS Safety Report 9893833 (Version 3)
Quarter: 2014Q2

REPORT INFORMATION
  Report Type: Spontaneous
  Country: JP (occurrence: JP)
  Receive Date: 20140213
  Receipt Date: 20140404
  Transmission Date: 20141212
  Serious: Yes (Other)
  Sender: FDA-Public Use
  Company Number: JP-PFIZER INC-2014040090

PATIENT
  Age: 83 Year
  Sex: Female

DRUGS (1)
  1. SELARA [Suspect]
     Indication: HYPERTENSION
     Dosage: 50 MG, 1X/DAY
     Route: 048
     Dates: start: 201301

REACTIONS (2)
  - Adrenal insufficiency [Recovered/Resolved]
  - Hyperkalaemia [Recovered/Resolved]
